FAERS Safety Report 7451457-3 (Version None)
Quarter: 2011Q2

REPORT INFORMATION
  Report Type: 
  Country: None (occurrence: None)
  Receive Date: 20110502
  Receipt Date: 20110420
  Transmission Date: 20111010
  Serious: Yes (Death)
  Sender: FDA-Public Use
  Company Number: A0924992A

PATIENT
  Age: 66 Year
  Sex: Male

DRUGS (4)
  1. PROMACTA [Suspect]
  2. CORTICOSTEROIDS [Concomitant]
  3. RITUXIMAB [Concomitant]
  4. IMMUNE GLOBULIN INTRAVENOUS (HUMAN) [Concomitant]

REACTIONS (1)
  - DEATH [None]
